FAERS Safety Report 15677760 (Version 2)
Quarter: 2018Q4

REPORT INFORMATION
  Report Type: Spontaneous
  Country: IN (occurrence: IN)
  Receive Date: 20181130
  Receipt Date: 20181228
  Transmission Date: 20190205
  Serious: Yes (Other)
  Sender: FDA-Public Use
  Company Number: IN-PFIZER INC-2018436803

PATIENT
  Sex: Male
  Weight: 55 kg

DRUGS (2)
  1. CHAMPIX [Suspect]
     Active Substance: VARENICLINE TARTRATE
     Dosage: 2 MG (1MG, 2 TABLETS), 1X/DAY
     Route: 048
     Dates: end: 20181215
  2. CHAMPIX [Suspect]
     Active Substance: VARENICLINE TARTRATE
     Indication: SMOKING CESSATION THERAPY
     Dosage: 2 MG (1MG, 2 TABLETS), 1X/DAY
     Route: 048
     Dates: start: 20181009, end: 20181015

REACTIONS (8)
  - Weight decreased [Unknown]
  - Weight increased [Unknown]
  - Dyspnoea [Unknown]
  - Thyroid disorder [Unknown]
  - Condition aggravated [Unknown]
  - Abdominal pain upper [Unknown]
  - Product use issue [Unknown]
  - Anaemia [Unknown]

NARRATIVE: CASE EVENT DATE: 20181009
